FAERS Safety Report 17588169 (Version 1)
Quarter: 2020Q1

REPORT INFORMATION
  Report Type: Other
  Country: RU (occurrence: RU)
  Receive Date: 20200326
  Receipt Date: 20200326
  Transmission Date: 20200409
  Serious: Yes (Hospitalization)
  Sender: FDA-Public Use
  Company Number: RU-INNOGENIX, LLC-2082035

PATIENT
  Age: 3 Year
  Sex: Female

DRUGS (3)
  1. METRONIDAZOLE. [Suspect]
     Active Substance: METRONIDAZOLE
     Indication: PRODUCT USED FOR UNKNOWN INDICATION
     Route: 048
  2. AMIKACIN SULFATE. [Suspect]
     Active Substance: AMIKACIN SULFATE
     Route: 065
  3. CEFTRIAXONE. [Suspect]
     Active Substance: CEFTRIAXONE
     Route: 065
     Dates: start: 20200308

REACTIONS (1)
  - Antibiotic associated colitis [Recovered/Resolved]
